FAERS Safety Report 19888545 (Version 1)
Quarter: 2021Q3

REPORT INFORMATION
  Report Type: Spontaneous
  Country: US (occurrence: US)
  Receive Date: 20210927
  Receipt Date: 20210927
  Transmission Date: 20211014
  Serious: No
  Sender: FDA-Public Use
  Company Number: US-KVK-TECH, INC-20210600079

PATIENT

DRUGS (16)
  1. PROSTATIN [ARCTOSTAPHYLOS UVA?URSI;DRIMIA MARITIMA;SERENOA REPENS] [Concomitant]
  2. OXYCODONE HYDROCHLORIDE TABLETS, USP [Suspect]
     Active Substance: OXYCODONE HYDROCHLORIDE
     Indication: BONE PAIN
  3. LINZESS [Concomitant]
     Active Substance: LINACLOTIDE
  4. CALCIUM [Concomitant]
     Active Substance: CALCIUM
  5. PREVACID [Concomitant]
     Active Substance: LANSOPRAZOLE
  6. ELIQUIS [Concomitant]
     Active Substance: APIXABAN
  7. OXYCODONE HYDROCHLORIDE TABLETS, USP [Suspect]
     Active Substance: OXYCODONE HYDROCHLORIDE
     Indication: ARTHRALGIA
     Dosage: 1 TABLET EVERY 8 HOURS, TID
     Dates: start: 20210518
  8. TRIVEDON [Concomitant]
  9. MAGNESIUM [Concomitant]
     Active Substance: MAGNESIUM
  10. TRIPTYLINE [Concomitant]
     Active Substance: AMITRIPTYLINE HYDROCHLORIDE
  11. TYLENOL 8HR [Concomitant]
     Active Substance: ACETAMINOPHEN
  12. VITAMIN D3 [Concomitant]
     Active Substance: CHOLECALCIFEROL
  13. LASIX P [Concomitant]
     Active Substance: FUROSEMIDE
  14. PREDNISONE. [Concomitant]
     Active Substance: PREDNISONE
  15. MULTIVITAMIN 6 [Concomitant]
     Active Substance: VITAMINS
  16. DOXEPIN [Concomitant]
     Active Substance: DOXEPIN

REACTIONS (1)
  - Drug ineffective [Unknown]

NARRATIVE: CASE EVENT DATE: 202105
